FAERS Safety Report 21951967 (Version 1)
Quarter: 2023Q1

REPORT INFORMATION
  Report Type: Spontaneous
  Country: FR (occurrence: FR)
  Receive Date: 20230203
  Receipt Date: 20230203
  Transmission Date: 20230418
  Serious: No
  Sender: FDA-Public Use
  Company Number: FR-EXELIXIS-CABO-21047807

PATIENT
  Age: 65 Year
  Sex: Female

DRUGS (2)
  1. CABOMETYX [Suspect]
     Active Substance: CABOZANTINIB S-MALATE
     Indication: Renal cancer
     Dosage: 40 MG, QD
     Dates: start: 20211203, end: 20220201
  2. LEVOTHYROXINE [Concomitant]
     Active Substance: LEVOTHYROXINE

REACTIONS (15)
  - Tongue erythema [Not Recovered/Not Resolved]
  - Tongue oedema [Not Recovered/Not Resolved]
  - Gingival disorder [Not Recovered/Not Resolved]
  - Oral discomfort [Not Recovered/Not Resolved]
  - Lip exfoliation [Not Recovered/Not Resolved]
  - Chapped lips [Not Recovered/Not Resolved]
  - Skin discolouration [Not Recovered/Not Resolved]
  - Burn of internal organs [Not Recovered/Not Resolved]
  - Myalgia [Recovered/Resolved]
  - Glossodynia [Not Recovered/Not Resolved]
  - Dry skin [Not Recovered/Not Resolved]
  - Mucosal inflammation [Not Recovered/Not Resolved]
  - Abdominal pain [Not Recovered/Not Resolved]
  - Arthralgia [Recovered/Resolved]
  - Pain in extremity [Not Recovered/Not Resolved]

NARRATIVE: CASE EVENT DATE: 20211201
